FAERS Safety Report 10652504 (Version 1)
Quarter: 2014Q4

REPORT INFORMATION
  Report Type: Spontaneous
  Country: US (occurrence: None)
  Receive Date: 20141205
  Receipt Date: 20141205
  Transmission Date: 20150529
  Serious: Yes (Hospitalization)
  Sender: FDA-Public Use
  Company Number: USA-2014-103942

PATIENT
  Sex: Male

DRUGS (10)
  1. POMALYST [Suspect]
     Active Substance: POMALIDOMIDE
     Indication: PLASMA CELL MYELOMA
     Dosage: 4 MG 21 IN 21 D, PO
     Route: 048
     Dates: start: 201410
  2. MOZOBIL(PLERIXAFOR) [Concomitant]
  3. DEXAMETHASONE(DEXAMETHASONE) [Concomitant]
  4. VITAMIN D(VITAMIN D NOS) [Concomitant]
  5. OXYCODONE(OXYCODONE) [Concomitant]
     Active Substance: OXYCODONE
  6. NEULASTA(PEGFILGRASTIM) [Concomitant]
  7. HYDROCODONE/ACETAMINOPHEN(PARACETAMOL,HYDROCODONE) [Concomitant]
  8. ACYCLOVIR(ACICLOVIR) [Concomitant]
  9. CALCIUM(CALCIUM) [Concomitant]
  10. ALLOPURINOL(ALLOPURINOL) [Concomitant]

REACTIONS (2)
  - Renal failure [None]
  - Pneumonia [None]

NARRATIVE: CASE EVENT DATE: 2014
